FAERS Safety Report 11288970 (Version 6)
Quarter: 2015Q4

REPORT INFORMATION
  Report Type: Report from Study
  Country: TZ (occurrence: TZ)
  Receive Date: 20150721
  Receipt Date: 20151113
  Transmission Date: 20160304
  Serious: Yes (Other)
  Sender: FDA-Public Use
  Company Number: TZ-JNJFOC-20150714462

PATIENT
  Age: 30 Year
  Sex: Male
  Weight: 51.6 kg

DRUGS (14)
  1. RIFAMPICIN [Suspect]
     Active Substance: RIFAMPIN
     Indication: PULMONARY TUBERCULOSIS
     Route: 065
     Dates: start: 20150910
  2. PARACETAMOL [Concomitant]
     Active Substance: ACETAMINOPHEN
     Indication: INFLUENZA LIKE ILLNESS
     Route: 048
     Dates: start: 20150703
  3. PHENYLEPHRINE W/TROPICAMIDE [Concomitant]
     Indication: PUPIL DILATION PROCEDURE
     Route: 047
     Dates: start: 20150430, end: 20151002
  4. CETIRIZINE [Concomitant]
     Active Substance: CETIRIZINE HYDROCHLORIDE
     Indication: INFLUENZA LIKE ILLNESS
     Route: 048
     Dates: start: 20150703, end: 20150808
  5. PYRAZINAMIDE. [Suspect]
     Active Substance: PYRAZINAMIDE
     Indication: PULMONARY TUBERCULOSIS
     Route: 048
     Dates: start: 20150627, end: 20150714
  6. PYRAZINAMIDE. [Suspect]
     Active Substance: PYRAZINAMIDE
     Indication: PULMONARY TUBERCULOSIS
     Route: 048
     Dates: start: 20150502, end: 20150626
  7. RIFAMPICIN [Suspect]
     Active Substance: RIFAMPIN
     Indication: PULMONARY TUBERCULOSIS
     Route: 065
     Dates: start: 20150627, end: 20150714
  8. ETHAMBUTOL [Suspect]
     Active Substance: ETHAMBUTOL HYDROCHLORIDE
     Indication: PULMONARY TUBERCULOSIS
     Route: 065
     Dates: start: 20150627, end: 20150714
  9. ISONIAZID. [Suspect]
     Active Substance: ISONIAZID
     Indication: PULMONARY TUBERCULOSIS
     Route: 065
     Dates: start: 20150627, end: 20150714
  10. ETHAMBUTOL [Suspect]
     Active Substance: ETHAMBUTOL HYDROCHLORIDE
     Indication: PULMONARY TUBERCULOSIS
     Route: 065
     Dates: start: 20150910
  11. JNJ16175328 [Suspect]
     Active Substance: BEDAQUILINE FUMARATE
     Indication: PULMONARY TUBERCULOSIS
     Route: 048
     Dates: start: 20150502, end: 20150626
  12. PA-824 [Suspect]
     Active Substance: PRETOMANID
     Indication: PULMONARY TUBERCULOSIS
     Route: 048
     Dates: start: 20150502, end: 20150626
  13. PYRAZINAMIDE. [Suspect]
     Active Substance: PYRAZINAMIDE
     Indication: PULMONARY TUBERCULOSIS
     Route: 048
     Dates: start: 20150910
  14. ISONIAZID. [Suspect]
     Active Substance: ISONIAZID
     Indication: PULMONARY TUBERCULOSIS
     Route: 065
     Dates: start: 20150910

REACTIONS (3)
  - Alanine aminotransferase increased [Recovered/Resolved]
  - Aspartate aminotransferase increased [Recovered/Resolved]
  - Bilirubin conjugated increased [Recovered/Resolved]

NARRATIVE: CASE EVENT DATE: 20150713
